FAERS Safety Report 7294884-X (Version None)
Quarter: 2011Q1

REPORT INFORMATION
  Report Type: 
  Country: None (occurrence: None)
  Receive Date: 20110216
  Receipt Date: 20110207
  Transmission Date: 20110831
  Serious: Yes (Other)
  Sender: FDA-Public Use
  Company Number: CO-BAYER-201019334LA

PATIENT
  Sex: Female
  Weight: 57 kg

DRUGS (1)
  1. MIRENA [Suspect]
     Indication: CONTRACEPTION
     Dosage: FREQUENCY: CONTINUOUS
     Route: 015
     Dates: start: 20090201, end: 20100815

REACTIONS (5)
  - ABORTION SPONTANEOUS INCOMPLETE [None]
  - PLACENTAL DISORDER [None]
  - METRORRHAGIA [None]
  - ENDOMETRIAL HYPERTROPHY [None]
  - PREGNANCY WITH CONTRACEPTIVE DEVICE [None]
